FAERS Safety Report 7383421-7 (Version None)
Quarter: 2011Q1

REPORT INFORMATION
  Report Type: 
  Country: None (occurrence: None)
  Receive Date: 20110325
  Receipt Date: 20110325
  Transmission Date: 20110831
  Serious: Yes (Hospitalization)
  Sender: FDA-Public Use
  Company Number: None

PATIENT
  Age: 74 Year
  Sex: Female
  Weight: 90.9 kg

DRUGS (9)
  1. OMEGA 3 FATTY ACID [Concomitant]
  2. OMNIPAQUE 140 [Suspect]
     Indication: COMPUTERISED TOMOGRAM
     Dosage: 100 ML ONCE IV RECENT
     Route: 042
  3. POTASSIUM CHLORIDE [Concomitant]
  4. M.V.I. [Concomitant]
  5. CALCIUM CARBONATE [Concomitant]
  6. DIGOXIN [Concomitant]
  7. COUMADIN [Suspect]
     Indication: ATRIAL FIBRILLATION
     Dosage: 2 MG / 7.5MG DAILY PO CHRONIC
     Route: 048
  8. MAXZIDE [Concomitant]
  9. VIT D [Concomitant]

REACTIONS (6)
  - DIVERTICULAR PERFORATION [None]
  - DIVERTICULITIS [None]
  - ABSCESS [None]
  - INTERNATIONAL NORMALISED RATIO INCREASED [None]
  - MUSCLE HAEMORRHAGE [None]
  - RENAL FAILURE ACUTE [None]
